FAERS Safety Report 16655575 (Version 1)
Quarter: 2019Q3

REPORT INFORMATION
  Report Type: Spontaneous
  Country: US (occurrence: US)
  Receive Date: 20190801
  Receipt Date: 20190801
  Transmission Date: 20191004
  Serious: No
  Sender: FDA-Public Use
  Company Number: US-BRISTOL-MYERS SQUIBB COMPANY-BMS-2019-074723

PATIENT
  Sex: Female

DRUGS (1)
  1. ELIQUIS [Suspect]
     Active Substance: APIXABAN
     Indication: ATRIAL FLUTTER
     Dosage: UNK, BID
     Route: 065
     Dates: start: 20190724

REACTIONS (6)
  - Chills [Unknown]
  - Intentional product use issue [Unknown]
  - Pyrexia [Unknown]
  - Throat irritation [Unknown]
  - Cough [Unknown]
  - Ear pain [Unknown]

NARRATIVE: CASE EVENT DATE: 20190724
